FAERS Safety Report 6360144-4 (Version None)
Quarter: 2009Q3

REPORT INFORMATION
  Report Type: 
  Country: None (occurrence: None)
  Receive Date: 20090917
  Receipt Date: 20090916
  Transmission Date: 20100115
  Serious: Yes (Death, Hospitalization)
  Sender: FDA-Public Use
  Company Number: JP-EISAI INC.-E2020-05136-CLI-JP

PATIENT
  Sex: Female
  Weight: 42 kg

DRUGS (8)
  1. ARICEPT [Suspect]
     Route: 048
     Dates: start: 20090318, end: 20090624
  2. LANIRAPID [Concomitant]
     Route: 048
  3. ARTIST [Concomitant]
     Route: 048
  4. DIART [Concomitant]
     Route: 048
  5. ALDACTONE [Concomitant]
     Route: 048
  6. THYRADIN [Concomitant]
     Route: 048
  7. ACARDI [Concomitant]
     Route: 048
  8. LORCAM [Concomitant]
     Route: 048
     Dates: start: 20090513

REACTIONS (3)
  - CARDIAC FAILURE [None]
  - DECREASED APPETITE [None]
  - DIARRHOEA [None]
